FAERS Safety Report 7332720-3 (Version None)
Quarter: 2011Q1

REPORT INFORMATION
  Report Type: 
  Country: None (occurrence: None)
  Receive Date: 20110304
  Receipt Date: 20110221
  Transmission Date: 20110831
  Serious: Yes (Hospitalization)
  Sender: FDA-Public Use
  Company Number: AU-JNJFOC-20110208140

PATIENT
  Sex: Female
  Weight: 2.32 kg

DRUGS (1)
  1. RISPERDAL [Suspect]
     Indication: DRUG EXPOSURE DURING PREGNANCY
     Route: 048

REACTIONS (3)
  - APGAR SCORE LOW [None]
  - NEONATAL RESPIRATORY DISTRESS SYNDROME [None]
  - WEIGHT DECREASE NEONATAL [None]
